FAERS Safety Report 9257060 (Version 1)
Quarter: 2013Q2

REPORT INFORMATION
  Report Type: Spontaneous
  Country: IE (occurrence: IE)
  Receive Date: 20130426
  Receipt Date: 20130426
  Transmission Date: 20140414
  Serious: Yes (Hospitalization, Other)
  Sender: FDA-Public Use
  Company Number: IE-JNJFOC-20110711394

PATIENT
  Age: 66 Year
  Sex: Male

DRUGS (9)
  1. XARELTO [Suspect]
     Route: 048
  2. XARELTO [Suspect]
     Indication: THROMBOSIS PROPHYLAXIS
     Route: 048
     Dates: start: 20110118, end: 20110124
  3. ACETYLSALICYLIC ACID [Suspect]
     Indication: CARDIOVASCULAR DISORDER
     Route: 048
     Dates: end: 20110124
  4. DICLOFENAC [Suspect]
     Indication: PAIN
     Route: 048
     Dates: start: 20110118, end: 20110124
  5. CELEBREX [Suspect]
     Indication: PAIN
     Route: 048
     Dates: start: 20101102, end: 20110124
  6. OLMESARTAN [Concomitant]
     Indication: HYPERTENSION
     Route: 065
  7. CARDICOR [Concomitant]
     Indication: HYPERTENSION
     Route: 065
  8. LIPITOR [Concomitant]
     Indication: DYSLIPIDAEMIA
     Route: 065
  9. ENOXAPARIN [Concomitant]
     Route: 065
     Dates: start: 20110114, end: 20110118

REACTIONS (7)
  - Acute myocardial infarction [Not Recovered/Not Resolved]
  - Pulmonary oedema [Not Recovered/Not Resolved]
  - Gastrointestinal haemorrhage [Not Recovered/Not Resolved]
  - Syncope [Not Recovered/Not Resolved]
  - Dizziness [Not Recovered/Not Resolved]
  - Dyspnoea [Not Recovered/Not Resolved]
  - Melaena [Not Recovered/Not Resolved]
